FAERS Safety Report 25445026 (Version 3)
Quarter: 2025Q2

REPORT INFORMATION
  Report Type: Spontaneous
  Country: CO (occurrence: CO)
  Receive Date: 20250617
  Receipt Date: 20250626
  Transmission Date: 20250717
  Serious: Yes (Death, Hospitalization, Other)
  Sender: REGENERON
  Company Number: CO-BAYER-2025A079335

PATIENT
  Sex: Male

DRUGS (1)
  1. EYLEA [Suspect]
     Active Substance: AFLIBERCEPT
     Indication: Macular degeneration
     Dosage: 40 MG, Q1MON, SOLUTION FOR INJECTION IN PRE-FILLED SYRINGE, 40 MG/ML

REACTIONS (3)
  - Gangrene [Fatal]
  - Ankle fracture [Unknown]
  - Fall [Unknown]
